FAERS Safety Report 6636197-2 (Version None)
Quarter: 2010Q1

REPORT INFORMATION
  Report Type: 
  Country: None (occurrence: None)
  Receive Date: 20100311
  Receipt Date: 20100302
  Transmission Date: 20100710
  Serious: No
  Sender: FDA-Public Use
  Company Number: 8017969

PATIENT
  Age: 31 Year
  Sex: Female

DRUGS (4)
  1. KEPPRA [Suspect]
     Indication: EPILEPSY
     Dosage: 2000 MG, DAILY ORAL
     Route: 048
     Dates: start: 20030804, end: 20070109
  2. SYNTHROID [Concomitant]
  3. FOLIC ACID [Concomitant]
  4. VITAMIN TAB [Concomitant]

REACTIONS (2)
  - BACTERIAL DISEASE CARRIER [None]
  - DRUG EXPOSURE DURING PREGNANCY [None]
